FAERS Safety Report 5238309-4 (Version None)
Quarter: 2007Q1

REPORT INFORMATION
  Report Type: 
  Country: None (occurrence: None)
  Receive Date: 20070209
  Receipt Date: 20070209
  Transmission Date: 20070707
  Serious: Yes (Other)
  Sender: FDA-Public Use
  Company Number: None

PATIENT
  Age: 64 Year
  Sex: Female
  Weight: 93 kg

DRUGS (1)
  1. DEFINITY [Suspect]
     Indication: CARDIOVASCULAR EVALUATION
     Dosage: 1.5 ML  IV
     Route: 042
     Dates: start: 20070207, end: 20070207

REACTIONS (2)
  - BACK PAIN [None]
  - CHEST PAIN [None]
